FAERS Safety Report 9901226 (Version 2)
Quarter: 2014Q3

REPORT INFORMATION
  Report Type: Spontaneous
  Country: US (occurrence: US)
  Receive Date: 20140217
  Receipt Date: 20140811
  Transmission Date: 20150326
  Serious: Yes (Hospitalization, Other)
  Sender: FDA-Public Use
  Company Number: US-009507513-1402USA007306

PATIENT
  Sex: Female

DRUGS (1)
  1. NUVARING [Suspect]
     Active Substance: ETHINYL ESTRADIOL\ETONOGESTREL
     Dosage: UNK
     Route: 067
     Dates: start: 20131216, end: 20140122

REACTIONS (8)
  - Hiatus hernia [Unknown]
  - Coeliac artery stenosis [Unknown]
  - Pulmonary mass [Unknown]
  - Pulmonary embolism [Recovering/Resolving]
  - Thyroid neoplasm [Unknown]
  - Deep vein thrombosis [Recovering/Resolving]
  - Viral upper respiratory tract infection [Recovered/Resolved]
  - Electrocardiogram T wave inversion [Unknown]

NARRATIVE: CASE EVENT DATE: 201401
